FAERS Safety Report 9521720 (Version 2)
Quarter: 2013Q4

REPORT INFORMATION
  Report Type: Spontaneous
  Country: FR (occurrence: None)
  Receive Date: 20130911
  Receipt Date: 20131016
  Transmission Date: 20140711
  Serious: Yes (Other)
  Sender: FDA-Public Use
  Company Number: AUR-APL-2013-07448

PATIENT
  Age: 38 Year
  Sex: Female

DRUGS (3)
  1. OLANZAPINE [Suspect]
     Indication: PSYCHOTIC DISORDER
     Dosage: (20 MG, 1 D), UNKNOWN
  2. CLONAZEPAM (CLONAZEPAM) (CLONAZEPAM) [Suspect]
     Indication: PSYCHOTIC DISORDER
     Dosage: (6 MG, 1 D), UNKNOWN
  3. DIAZEPAM (DIAZEPAM) [Concomitant]

REACTIONS (2)
  - Salivary hypersecretion [None]
  - Withdrawal syndrome [None]
